FAERS Safety Report 4321093-6 (Version None)
Quarter: 2004Q1

REPORT INFORMATION
  Report Type: 
  Country: None (occurrence: None)
  Receive Date: 20040322
  Receipt Date: 20040322
  Transmission Date: 20041129
  Serious: Yes (Other)
  Sender: FDA-Public Use
  Company Number: None

PATIENT
  Age: 28 Year
  Sex: Female
  Weight: 58.0604 kg

DRUGS (2)
  1. ZOLOFT [Suspect]
     Indication: ANXIETY
     Dosage: 50MG 1 A DAY OROPHARINGEAL
     Route: 049
  2. ZOLOFT [Suspect]
     Indication: DEPRESSION
     Dosage: 50MG 1 A DAY OROPHARINGEAL
     Route: 049

REACTIONS (3)
  - DIZZINESS [None]
  - IRRITABILITY [None]
  - PARAESTHESIA [None]
